FAERS Safety Report 5938873-3 (Version None)
Quarter: 2008Q4

REPORT INFORMATION
  Report Type: 
  Country: None (occurrence: None)
  Receive Date: 20081103
  Receipt Date: 20081002
  Transmission Date: 20090506
  Serious: No
  Sender: FDA-Public Use
  Company Number: US-BAYER-200835373NA

PATIENT
  Sex: Female

DRUGS (2)
  1. ANGELIQ [Suspect]
     Indication: DRUG USE FOR UNKNOWN INDICATION
     Route: 048
     Dates: start: 20080401, end: 20080701
  2. ANGELIQ [Suspect]
     Route: 048
     Dates: start: 20081001

REACTIONS (2)
  - ALOPECIA [None]
  - HOT FLUSH [None]
